FAERS Safety Report 25855173 (Version 1)
Quarter: 2025Q3

REPORT INFORMATION
  Report Type: Spontaneous
  Country: US (occurrence: US)
  Receive Date: 20250927
  Receipt Date: 20250927
  Transmission Date: 20251020
  Serious: No
  Sender: ALEXION PHARMACEUTICALS
  Company Number: 202504USA016370US

PATIENT
  Sex: Male

DRUGS (1)
  1. TAGRISSO [Suspect]
     Active Substance: OSIMERTINIB
     Indication: Interstitial lung disease
     Dosage: 40 MILLIGRAM, QD
     Dates: start: 202503

REACTIONS (1)
  - Hepatic enzyme abnormal [Unknown]
